FAERS Safety Report 9531902 (Version 2)
Quarter: 2013Q4

REPORT INFORMATION
  Report Type: Spontaneous
  Country: FR (occurrence: FR)
  Receive Date: 20130918
  Receipt Date: 20131101
  Transmission Date: 20140711
  Serious: Yes (Death, Hospitalization, Other)
  Sender: FDA-Public Use
  Company Number: FR-SANOFI-AVENTIS-2013SA091919

PATIENT
  Age: 41 Year
  Sex: Female

DRUGS (52)
  1. FLAGYL [Suspect]
     Indication: PRODUCT USED FOR UNKNOWN INDICATION
     Route: 048
     Dates: start: 20130712, end: 20130812
  2. HEPARIN SODIUM [Suspect]
     Indication: PRODUCT USED FOR UNKNOWN INDICATION
     Route: 042
     Dates: start: 20130605
  3. LARGACTIL [Suspect]
     Indication: PRODUCT USED FOR UNKNOWN INDICATION
     Dosage: FORM:INFUSION
     Route: 042
     Dates: start: 20130619, end: 20130709
  4. EXACYL [Suspect]
     Indication: PRODUCT USED FOR UNKNOWN INDICATION
     Dosage: FORM:INFUSION
     Route: 042
     Dates: start: 20130727, end: 20130812
  5. LASILIX [Suspect]
     Indication: PRODUCT USED FOR UNKNOWN INDICATION
     Route: 042
     Dates: start: 20130716, end: 20130809
  6. GRANOCYTE [Suspect]
     Indication: PRODUCT USED FOR UNKNOWN INDICATION
     Dosage: FORM:INFUSION
     Route: 042
     Dates: start: 20130807
  7. DELURSAN [Suspect]
     Indication: PRODUCT USED FOR UNKNOWN INDICATION
     Route: 048
     Dates: start: 20130605, end: 20130708
  8. GENTAMICIN [Suspect]
     Indication: PRODUCT USED FOR UNKNOWN INDICATION
     Dosage: FORM:INFUSION
     Route: 042
     Dates: start: 20130809, end: 20130811
  9. NOXAFIL [Suspect]
     Indication: PRODUCT USED FOR UNKNOWN INDICATION
     Route: 048
     Dates: start: 20130619, end: 20130708
  10. CANCIDAS [Suspect]
     Indication: PRODUCT USED FOR UNKNOWN INDICATION
     Dosage: FORM:INFUSION
     Route: 042
     Dates: start: 20130709, end: 20130709
  11. AMBISOME [Suspect]
     Indication: PRODUCT USED FOR UNKNOWN INDICATION
     Dosage: FORM:INFUSION
     Route: 042
     Dates: start: 20130709, end: 20130811
  12. BACTRIM [Suspect]
     Indication: PRODUCT USED FOR UNKNOWN INDICATION
     Route: 042
     Dates: start: 20130724, end: 20130809
  13. FOLINIC ACID [Suspect]
     Indication: PRODUCT USED FOR UNKNOWN INDICATION
     Route: 042
     Dates: start: 20130724, end: 20130809
  14. ZELITREX [Suspect]
     Indication: PRODUCT USED FOR UNKNOWN INDICATION
     Dosage: FORM:INFUSION
     Route: 042
     Dates: start: 20130709, end: 20130812
  15. CYMEVAN [Suspect]
     Indication: PRODUCT USED FOR UNKNOWN INDICATION
     Dosage: FORM:INFUSION
     Route: 042
     Dates: start: 20130726, end: 20130812
  16. FOSCAVIR [Suspect]
     Indication: PRODUCT USED FOR UNKNOWN INDICATION
     Route: 042
     Dates: start: 20130808
  17. CLAIRYG [Suspect]
     Indication: PRODUCT USED FOR UNKNOWN INDICATION
     Dosage: FORM:INFUSION
     Route: 042
  18. INEXIUM [Suspect]
     Indication: PRODUCT USED FOR UNKNOWN INDICATION
     Route: 042
     Dates: start: 20130709, end: 20130812
  19. SPASFON [Suspect]
     Indication: PRODUCT USED FOR UNKNOWN INDICATION
     Route: 042
     Dates: start: 20130619
  20. DEFIBROTIDE [Suspect]
     Indication: PRODUCT USED FOR UNKNOWN INDICATION
     Route: 042
     Dates: start: 20130605, end: 20130812
  21. TRANXENE [Suspect]
     Indication: PRODUCT USED FOR UNKNOWN INDICATION
     Route: 048
     Dates: start: 20130622, end: 20130709
  22. PERFALGAN [Suspect]
     Indication: PRODUCT USED FOR UNKNOWN INDICATION
     Route: 042
     Dates: start: 20130710, end: 20130812
  23. SOLUMEDROL [Suspect]
     Indication: PRODUCT USED FOR UNKNOWN INDICATION
     Dosage: FORM:INFUSION
     Route: 042
     Dates: start: 20130709
  24. DROLEPTAN [Suspect]
     Indication: PRODUCT USED FOR UNKNOWN INDICATION
     Route: 042
     Dates: start: 20130712, end: 20130717
  25. ULTIVA [Suspect]
     Indication: PRODUCT USED FOR UNKNOWN INDICATION
     Route: 042
     Dates: start: 20130714, end: 20130717
  26. ATARAX [Suspect]
     Indication: PRODUCT USED FOR UNKNOWN INDICATION
     Route: 048
     Dates: start: 20130714
  27. SEROPLEX [Suspect]
     Indication: PRODUCT USED FOR UNKNOWN INDICATION
     Route: 048
     Dates: start: 20130721
  28. CERIS [Suspect]
     Indication: PRODUCT USED FOR UNKNOWN INDICATION
     Route: 048
     Dates: start: 20130807
  29. NOCTAMIDE [Suspect]
     Indication: PRODUCT USED FOR UNKNOWN INDICATION
     Route: 048
     Dates: start: 20130605, end: 20130708
  30. NOCTAMIDE [Suspect]
     Indication: PRODUCT USED FOR UNKNOWN INDICATION
     Route: 048
     Dates: start: 20130808
  31. OXYNORM [Suspect]
     Indication: PRODUCT USED FOR UNKNOWN INDICATION
     Dosage: FORM:INFUSION
     Route: 042
     Dates: start: 20130619
  32. FORTUM [Suspect]
     Indication: PRODUCT USED FOR UNKNOWN INDICATION
     Route: 042
     Dates: start: 20130621, end: 20130809
  33. VANCOMYCIN HYDROCHLORIDE [Concomitant]
  34. CIFLOX [Concomitant]
     Dates: start: 20130621, end: 20130712
  35. TARGOCID [Concomitant]
     Dates: start: 20130710
  36. MYCOSTATIN [Concomitant]
     Dates: start: 20130605, end: 20130619
  37. TRIFLUCAN [Concomitant]
     Dates: start: 20130605, end: 20130618
  38. ZOVIRAX [Concomitant]
     Dates: start: 20130605, end: 20130709
  39. METHOTREXATE [Concomitant]
     Dates: start: 20130605, end: 20130619
  40. ELVORINE [Concomitant]
     Dates: start: 20130605, end: 20130619
  41. SANDIMMUNE [Concomitant]
     Dates: start: 20130614, end: 20130708
  42. MOPRAL [Concomitant]
     Dates: start: 20130605, end: 20130618
  43. OGASTORO [Concomitant]
     Dates: start: 20130619, end: 20130708
  44. GELOX [Concomitant]
     Dates: start: 20130605, end: 20130708
  45. SMECTA [Concomitant]
     Dates: start: 20130620, end: 20130708
  46. LUTERAN [Concomitant]
     Dates: start: 20130605, end: 20130708
  47. LEXOMIL [Concomitant]
     Dates: start: 20130605, end: 20130708
  48. PRIMPERAN [Concomitant]
     Dates: start: 20130620, end: 20130709
  49. ACUPAN [Concomitant]
     Dates: start: 20130620, end: 20130709
  50. TIORFAN [Concomitant]
     Dates: start: 20130622, end: 20130708
  51. LEVOCARNIL [Concomitant]
     Dates: start: 20130709, end: 20130714
  52. ZOPHREN [Concomitant]
     Dates: start: 20130605, end: 20130708

REACTIONS (11)
  - Multi-organ failure [Fatal]
  - Hepatitis fulminant [Not Recovered/Not Resolved]
  - Graft versus host disease in intestine [Unknown]
  - Toxic epidermal necrolysis [Not Recovered/Not Resolved]
  - Blister [Not Recovered/Not Resolved]
  - Skin lesion [Not Recovered/Not Resolved]
  - Oedema [Not Recovered/Not Resolved]
  - Skin exfoliation [Not Recovered/Not Resolved]
  - Bladder disorder [Not Recovered/Not Resolved]
  - Haematuria [Not Recovered/Not Resolved]
  - Renal failure acute [Not Recovered/Not Resolved]
